FAERS Safety Report 6946627-4 (Version None)
Quarter: 2010Q3

REPORT INFORMATION
  Report Type: 
  Country: None (occurrence: None)
  Receive Date: 20100825
  Receipt Date: 20100809
  Transmission Date: 20110219
  Serious: Yes (Hospitalization)
  Sender: FDA-Public Use
  Company Number: DSA_43743_2010

PATIENT
  Age: 35 Year
  Sex: Male

DRUGS (2)
  1. ENALAPRIL MALEATE [Suspect]
     Indication: CARDIOMYOPATHY
     Dosage: (DF ORAL)
     Route: 048
     Dates: start: 20090101, end: 20090701
  2. DOXAZOSIN MESYLATE [Suspect]
     Dosage: (DF ORAL)
     Route: 048
     Dates: start: 20090701, end: 20090801

REACTIONS (9)
  - ANXIETY [None]
  - BLOOD CALCIUM INCREASED [None]
  - CENTRAL NERVOUS SYSTEM LESION [None]
  - CEREBRAL ISCHAEMIA [None]
  - CONFUSIONAL STATE [None]
  - GENERAL PHYSICAL CONDITION ABNORMAL [None]
  - HALLUCINATION [None]
  - METABOLIC ENCEPHALOPATHY [None]
  - ORTHOSTATIC HYPOTENSION [None]
